FAERS Safety Report 10382584 (Version 1)
Quarter: 2014Q3

REPORT INFORMATION
  Report Type: Spontaneous
  Country: US (occurrence: US)
  Receive Date: 20140813
  Receipt Date: 20140813
  Transmission Date: 20150326
  Serious: No
  Sender: FDA-Public Use
  Company Number: US-SA-2013SA107491

PATIENT
  Age: 77 Year
  Sex: Female
  Weight: 83 kg

DRUGS (1)
  1. MULTAQ [Suspect]
     Active Substance: DRONEDARONE
     Indication: ATRIAL FIBRILLATION
     Dosage: PRODUCT STARTED APPROXIMATELY IN APRIL OR MAY 2013.
     Route: 048
     Dates: start: 20130529

REACTIONS (12)
  - Vertigo [Recovering/Resolving]
  - Nail disorder [Recovering/Resolving]
  - Fatigue [Recovering/Resolving]
  - Underdose [Unknown]
  - Headache [Recovering/Resolving]
  - Skin disorder [Recovering/Resolving]
  - Malaise [Not Recovered/Not Resolved]
  - Condition aggravated [Recovering/Resolving]
  - Abdominal discomfort [Recovering/Resolving]
  - Nausea [Recovering/Resolving]
  - Dry skin [Recovering/Resolving]
  - Abnormal dreams [Recovering/Resolving]

NARRATIVE: CASE EVENT DATE: 20130530
